FAERS Safety Report 9868317 (Version 2)
Quarter: 2014Q1

REPORT INFORMATION
  Report Type: Spontaneous
  Country: GB (occurrence: GB)
  Receive Date: 20140204
  Receipt Date: 20140204
  Transmission Date: 20141002
  Serious: Yes (Hospitalization)
  Sender: FDA-Public Use
  Company Number: GB-MERCK-1309GBR002526

PATIENT
  Age: 73 Year
  Sex: Male

DRUGS (11)
  1. CANCIDAS [Suspect]
     Indication: INFECTION
     Dosage: OD
     Route: 042
     Dates: end: 20130830
  2. CANCIDAS [Suspect]
     Dosage: OD
     Route: 042
  3. ONDANSETRON [Concomitant]
  4. LEVOTHYROXINE SODIUM [Concomitant]
     Dosage: 100 MICROGRAM, OM
     Route: 048
  5. MIRTAZAPINE [Concomitant]
     Dosage: UNK
     Route: 048
  6. FUROSEMIDE [Concomitant]
     Dosage: 20 MG, OM
     Route: 048
  7. LANSOPRAZOLE [Concomitant]
     Dosage: 30 MG, OD
  8. ACETAMINOPHEN [Concomitant]
     Dosage: 1 G, QDS
  9. ASPIRIN [Concomitant]
     Dosage: 75 MG, OD
  10. NEBIVOLOL [Concomitant]
     Dosage: 2.25 MG, OM
  11. CREON (PANCREATIN) [Concomitant]
     Dosage: 40000 UNITS TDS

REACTIONS (2)
  - Infection [Recovering/Resolving]
  - Drug ineffective [Unknown]
